FAERS Safety Report 10677037 (Version 1)
Quarter: 2014Q4

REPORT INFORMATION
  Report Type: Other
  Country: JP (occurrence: JP)
  Receive Date: 20141226
  Receipt Date: 20141226
  Transmission Date: 20150529
  Serious: Yes (Hospitalization)
  Sender: FDA-Public Use
  Company Number: JP-BAUSCH-BL-2014-010623

PATIENT
  Age: 46 Year
  Sex: Female

DRUGS (10)
  1. NIFEDIPINE. [Suspect]
     Active Substance: NIFEDIPINE
     Indication: PRINZMETAL ANGINA
  2. NIFEDIPINE. [Suspect]
     Active Substance: NIFEDIPINE
  3. DILTIAZEM [Suspect]
     Active Substance: DILTIAZEM
  4. NICORANDIL [Suspect]
     Active Substance: NICORANDIL
     Indication: PRINZMETAL ANGINA
  5. NICORANDIL [Suspect]
     Active Substance: NICORANDIL
  6. ISOSORBIDE MONONITRATE. [Suspect]
     Active Substance: ISOSORBIDE MONONITRATE
     Indication: PRINZMETAL ANGINA
  7. ISOSORBIDE DINITRATE. [Suspect]
     Active Substance: ISOSORBIDE DINITRATE
     Indication: PRINZMETAL ANGINA
  8. DILTIAZEM [Suspect]
     Active Substance: DILTIAZEM
     Indication: PRINZMETAL ANGINA
  9. AMLODIPINE [Suspect]
     Active Substance: AMLODIPINE BESYLATE
     Indication: PRINZMETAL ANGINA
  10. ISOSORBIDE DINITRATE. [Suspect]
     Active Substance: ISOSORBIDE DINITRATE

REACTIONS (3)
  - Urinary incontinence [Unknown]
  - Angina unstable [Recovering/Resolving]
  - Syncope [Unknown]
